FAERS Safety Report 17412639 (Version 1)
Quarter: 2020Q1

REPORT INFORMATION
  Report Type: Spontaneous
  Country: US (occurrence: US)
  Receive Date: 20200129
  Receipt Date: 20200129
  Transmission Date: 20200409
  Serious: No
  Sender: FDA-Public Use
  Company Number: None

PATIENT
  Age: 42 Year
  Sex: Female

DRUGS (1)
  1. HUMIRA [Suspect]
     Active Substance: ADALIMUMAB
     Indication: PSORIASIS
     Route: 058
     Dates: start: 201912

REACTIONS (6)
  - Nasopharyngitis [None]
  - Cough [None]
  - Influenza like illness [None]
  - Pyrexia [None]
  - Chills [None]
  - Nausea [None]

NARRATIVE: CASE EVENT DATE: 201912
